FAERS Safety Report 5552177-2 (Version None)
Quarter: 2007Q4

REPORT INFORMATION
  Report Type: 
  Country: None (occurrence: None)
  Receive Date: 20071210
  Receipt Date: 20071126
  Transmission Date: 20080405
  Serious: Yes (Hospitalization)
  Sender: FDA-Public Use
  Company Number: A-CH2007-18625

PATIENT
  Age: 37 Year
  Sex: Female

DRUGS (6)
  1. TRACLEER [Suspect]
     Indication: SKIN ULCER
     Dosage: 125 MG, BID, ORAL
     Route: 048
     Dates: start: 20070630, end: 20070908
  2. CO-AMILOFRUSE (FUROSEMIDE, AMILORIDE HYDROCHLORIDE) [Concomitant]
  3. DICLOFENAC SODIUM [Concomitant]
  4. FLUOXETINE [Concomitant]
  5. LANSOPRAZOLE [Concomitant]
  6. OXYCODONE HCL [Concomitant]

REACTIONS (4)
  - BLISTER [None]
  - OEDEMA PERIPHERAL [None]
  - RASH [None]
  - SKIN ULCER [None]
